FAERS Safety Report 10791446 (Version 2)
Quarter: 2015Q1

REPORT INFORMATION
  Report Type: Spontaneous
  Country: BG (occurrence: BG)
  Receive Date: 20150213
  Receipt Date: 20150217
  Transmission Date: 20150721
  Serious: Yes (Life-Threatening, Other)
  Sender: FDA-Public Use
  Company Number: BG-ASTRAZENECA-2015SE12713

PATIENT
  Age: 122 Month
  Sex: Female

DRUGS (7)
  1. OMEPRAZOLE. [Suspect]
     Active Substance: OMEPRAZOLE
     Indication: ABDOMINAL PAIN UPPER
     Dosage: DAILY
     Route: 048
  2. CLARITHROMYCIN. [Interacting]
     Active Substance: CLARITHROMYCIN
     Indication: RESPIRATORY TRACT INFECTION
  3. XYZAL [Interacting]
     Active Substance: LEVOCETIRIZINE DIHYDROCHLORIDE
  4. THEOPHYLLINE [Interacting]
     Active Substance: THEOPHYLLINE ANHYDROUS
  5. CALCIUM GLUCONATE. [Interacting]
     Active Substance: CALCIUM GLUCONATE
     Indication: HYPERSENSITIVITY
  6. CISAPRIDE [Interacting]
     Active Substance: CISAPRIDE
     Indication: ABDOMINAL PAIN UPPER
     Dosage: DAILY
  7. DIMEX [Interacting]
     Active Substance: AMMONIUM CHLORIDE\DIPHENHYDRAMINE HYDROCHLORIDE
     Dosage: 150 MG

REACTIONS (6)
  - Drug interaction [Unknown]
  - Nodal rhythm [Unknown]
  - Respiratory arrest [Unknown]
  - Electrocardiogram QT prolonged [Unknown]
  - Cyanosis [Unknown]
  - Foaming at mouth [Unknown]
